FAERS Safety Report 6554053-5 (Version None)
Quarter: 2010Q1

REPORT INFORMATION
  Report Type: 
  Country: None (occurrence: None)
  Receive Date: 20100127
  Receipt Date: 20100118
  Transmission Date: 20100710
  Serious: Yes (Hospitalization)
  Sender: FDA-Public Use
  Company Number: TW-BRACCO-000006

PATIENT
  Age: 78 Year
  Sex: Male
  Weight: 48 kg

DRUGS (11)
  1. DOXAZOSIN MESYLATE [Concomitant]
     Dosage: 1 PC
     Route: 048
  2. ANDROCUR [Concomitant]
     Dosage: 1 PC
     Route: 048
  3. PREDNISOLONE [Concomitant]
     Route: 065
     Dates: start: 20090218
  4. OXYGEN [Concomitant]
     Dosage: NASAL CANNULA AT 3 LITERS/MIN
     Route: 055
  5. OXYGEN [Concomitant]
     Dosage: 30% MASK AT 8 LITERS/MIN
     Route: 055
     Dates: start: 20090218
  6. MULTIHANCE [Suspect]
     Indication: NUCLEAR MAGNETIC RESONANCE IMAGING
     Route: 042
     Dates: start: 20090217, end: 20090217
  7. MULTIHANCE [Suspect]
     Route: 042
     Dates: start: 20090212, end: 20090212
  8. MULTIHANCE [Suspect]
     Indication: DIAGNOSTIC PROCEDURE
     Route: 042
     Dates: start: 20090217, end: 20090217
  9. MULTIHANCE [Suspect]
     Indication: METASTASES TO SPINE
     Route: 042
     Dates: start: 20090217, end: 20090217
  10. BACLOFEN [Concomitant]
     Dosage: 1 PC
     Route: 048
  11. DEXAMETHASONE [Concomitant]
     Dosage: 1 PC
     Route: 048

REACTIONS (2)
  - INTERSTITIAL LUNG DISEASE [None]
  - SINUS TACHYCARDIA [None]
